FAERS Safety Report 9105542 (Version 2)
Quarter: 2013Q1

REPORT INFORMATION
  Report Type: Spontaneous
  Country: DE (occurrence: DE)
  Receive Date: 20130220
  Receipt Date: 20130313
  Transmission Date: 20140127
  Serious: Yes (Other)
  Sender: FDA-Public Use
  Company Number: DE-BAYER-2013-022070

PATIENT
  Age: 85 Year
  Sex: Male
  Weight: 85 kg

DRUGS (7)
  1. XARELTO [Suspect]
     Indication: PULMONARY EMBOLISM
     Dosage: 15 MG, QD
     Dates: start: 201301
  2. XARELTO [Suspect]
     Indication: CEREBROVASCULAR ACCIDENT PROPHYLAXIS
  3. XARELTO [Suspect]
     Indication: ATRIAL FIBRILLATION
  4. XARELTO [Suspect]
     Indication: THROMBOSIS PROPHYLAXIS
  5. ASS [Suspect]
     Indication: CORONARY ARTERY DISEASE
     Dosage: 100 MG, UNK
  6. PANTOPRAZOLE [Concomitant]
     Indication: PROPHYLAXIS
     Dosage: 40 MG, QD
  7. CLEXANE [Concomitant]

REACTIONS (4)
  - Gastrointestinal haemorrhage [Recovered/Resolved]
  - Haemoglobin decreased [Recovered/Resolved]
  - Epistaxis [None]
  - Melaena [Recovered/Resolved]
